FAERS Safety Report 8731668 (Version 2)
Quarter: 2012Q4

REPORT INFORMATION
  Report Type: 
  Country: JP (occurrence: JP)
  Receive Date: 20120820
  Receipt Date: 20121016
  Transmission Date: 20130627
  Serious: Yes (Other)
  Sender: FDA-Public Use
  Company Number: JP-PFIZER INC-2012202327

PATIENT
  Age: 77 Year
  Sex: Female

DRUGS (1)
  1. SOLU-CORTEF [Suspect]
     Dosage: 500 mg, 1x/day
     Route: 042

REACTIONS (1)
  - Shock [Recovered/Resolved]
